FAERS Safety Report 9441528 (Version 2)
Quarter: 2013Q3

REPORT INFORMATION
  Report Type: Spontaneous
  Country: US (occurrence: US)
  Receive Date: 20130805
  Receipt Date: 20130829
  Transmission Date: 20140515
  Serious: Yes (Hospitalization, Other)
  Sender: FDA-Public Use
  Company Number: US-RB-056865-13

PATIENT
  Age: 40 Year
  Sex: Female

DRUGS (4)
  1. SUBOXONE FILM [Suspect]
     Indication: DRUG DEPENDENCE
     Dosage: SUBOXONE FILM
     Route: 060
     Dates: start: 20130701
  2. CYTARABINE [Concomitant]
     Indication: LEUKAEMIA
     Dosage: DOSING DETAILS UNKNOWN
     Route: 042
     Dates: start: 20120914
  3. ANTIVIRAL [Concomitant]
     Indication: INFECTION PROPHYLAXIS
     Dosage: DOSING DETAILS UNKNOWN
     Route: 048
     Dates: start: 2012
  4. TYLENOL [Concomitant]
     Indication: CANCER PAIN
     Dosage: PRESCRIBED 2 TABLETS
     Route: 048
     Dates: start: 2012

REACTIONS (3)
  - Leukaemia [Recovered/Resolved]
  - Condition aggravated [Recovered/Resolved]
  - Therapeutic response unexpected [Not Recovered/Not Resolved]
